FAERS Safety Report 8909323 (Version 1)
Quarter: 2012Q4

REPORT INFORMATION
  Report Type: Spontaneous
  Country: GB (occurrence: None)
  Receive Date: 20121107
  Receipt Date: 20121107
  Transmission Date: 20130627
  Serious: Yes (Other)
  Sender: FDA-Public Use
  Company Number: AUR-APL-2012-04649

PATIENT
  Age: 2 Month
  Sex: Male
  Weight: 12.3 kg

DRUGS (1)
  1. AMOXICILLIN (AMOXICILLIN) [Suspect]
     Indication: OTITIS MEDIA
     Route: 048
     Dates: start: 20120807, end: 20120814

REACTIONS (1)
  - Hypersensitivity [None]
